FAERS Safety Report 9849918 (Version 1)
Quarter: 2014Q1

REPORT INFORMATION
  Report Type: Spontaneous
  Country: US (occurrence: None)
  Receive Date: 20140124
  Receipt Date: 20140124
  Transmission Date: 20141002
  Serious: Yes (Disabling, Other)
  Sender: FDA-Public Use
  Company Number: None

PATIENT
  Age: 83 Year
  Sex: Female
  Weight: 99.79 kg

DRUGS (8)
  1. CIPROFLOXACIN [Suspect]
     Indication: CYSTITIS
     Dosage: 1 TABLET 2X^S A DAY, TWICE DAILY, BY MOUTH
     Route: 048
     Dates: start: 20130829, end: 20130904
  2. CIPROFLOXACIN [Suspect]
     Indication: URINARY TRACT INFECTION
     Dosage: 1 TABLET 2X^S A DAY, TWICE DAILY, BY MOUTH
     Route: 048
     Dates: start: 20130829, end: 20130904
  3. CELEBREX [Concomitant]
  4. OMEGA3 [Concomitant]
  5. VIT-D [Concomitant]
  6. VIT-C [Concomitant]
  7. VIT B12 [Concomitant]
  8. CALCIUM-MAGANESE+ZINC [Concomitant]

REACTIONS (6)
  - Myalgia [None]
  - Arthropathy [None]
  - Pain in extremity [None]
  - Gait disturbance [None]
  - Arthralgia [None]
  - Urinary tract infection [None]
